FAERS Safety Report 11497413 (Version 1)
Quarter: 2015Q3

REPORT INFORMATION
  Report Type: Spontaneous
  Country: US (occurrence: US)
  Receive Date: 20150911
  Receipt Date: 20150911
  Transmission Date: 20151125
  Serious: Yes (Hospitalization)
  Sender: FDA-Public Use
  Company Number: US-BAYER-2015-416331

PATIENT
  Age: 45 Year
  Sex: Male

DRUGS (2)
  1. GADAVIST [Suspect]
     Active Substance: GADOBUTROL
     Indication: NUCLEAR MAGNETIC RESONANCE IMAGING
     Dosage: 10 ML, ONCE
     Dates: start: 20150903, end: 20150903
  2. GLUCAGON. [Suspect]
     Active Substance: GLUCAGON
     Dosage: 0.5 ML WAS INJECTED AND 10 MIN LATER 0.5 ML WAS INJECTED AGAIN
     Route: 042
     Dates: start: 20150903, end: 20150903

REACTIONS (5)
  - Dyspnoea [None]
  - Loss of consciousness [None]
  - Feeling hot [None]
  - Unresponsive to stimuli [Recovered/Resolved]
  - Pallor [None]

NARRATIVE: CASE EVENT DATE: 20150903
